FAERS Safety Report 6262718-8 (Version None)
Quarter: 2009Q3

REPORT INFORMATION
  Report Type: 
  Country: None (occurrence: None)
  Receive Date: 20090708
  Receipt Date: 20090623
  Transmission Date: 20100115
  Serious: No
  Sender: FDA-Public Use
  Company Number: KV200801333

PATIENT
  Age: 60 Year
  Sex: Female
  Weight: 117.9 kg

DRUGS (5)
  1. MORPHINE SULFATE [Suspect]
     Indication: PAIN
     Dosage: 15 MG, BID, TID, ORAL
     Route: 048
     Dates: start: 20060929, end: 20061116
  2. LIPITOR [Concomitant]
  3. LISINOPRIL [Concomitant]
  4. AVANDAMET [Concomitant]
  5. TOPROL-XL [Concomitant]

REACTIONS (10)
  - BALANCE DISORDER [None]
  - FALL [None]
  - HALLUCINATION [None]
  - HEADACHE [None]
  - LOSS OF CONSCIOUSNESS [None]
  - MULTIPLE INJURIES [None]
  - NAUSEA [None]
  - UPPER LIMB FRACTURE [None]
  - VOMITING [None]
  - WRIST FRACTURE [None]
